FAERS Safety Report 18311037 (Version 2)
Quarter: 2020Q4

REPORT INFORMATION
  Report Type: Other
  Country: SG (occurrence: SG)
  Receive Date: 20200924
  Receipt Date: 20201230
  Transmission Date: 20210113
  Serious: Yes (Hospitalization, Other)
  Sender: FDA-Public Use
  Company Number: SG-ROCHE-2680356

PATIENT
  Age: 77 Year
  Sex: Female

DRUGS (3)
  1. KADCYLA [Suspect]
     Active Substance: ADO-TRASTUZUMAB EMTANSINE
     Indication: BREAST CANCER
     Route: 065
  2. PERJETA [Suspect]
     Active Substance: PERTUZUMAB
     Indication: BREAST CANCER
     Dosage: 420MG/14ML INJ
     Route: 042
  3. HERCEPTIN [Suspect]
     Active Substance: TRASTUZUMAB
     Indication: BREAST CANCER
     Dosage: 440 MG/14ML INJECTION
     Route: 058

REACTIONS (3)
  - Gastric disorder [Unknown]
  - Muscle spasms [Unknown]
  - Neuropathy peripheral [Unknown]

NARRATIVE: CASE EVENT DATE: 20200823
